FAERS Safety Report 16678329 (Version 1)
Quarter: 2019Q3

REPORT INFORMATION
  Report Type: Spontaneous
  Country: US (occurrence: US)
  Receive Date: 20190806
  Receipt Date: 20190806
  Transmission Date: 20191004
  Serious: Yes (Hospitalization)
  Sender: FDA-Public Use
  Company Number: None

PATIENT
  Age: 85 Year
  Sex: Male

DRUGS (11)
  1. ALLEGRA ALRG TAB 180 MG [Concomitant]
  2. FUROSEMIDE TRAB 20 MG [Concomitant]
  3. ASPIRIN LOW TAB 81 MG EC [Concomitant]
  4. LISINOPRIL TAB 20 MG [Concomitant]
  5. NORVASC TAB 5 MG [Concomitant]
  6. FINASTERIDE TAB 5 MG [Concomitant]
  7. SUTENT [Suspect]
     Active Substance: SUNITINIB MALATE
     Indication: CARCINOID TUMOUR
     Route: 048
     Dates: start: 20190617
  8. VITAMIN D3 CAP 1000 UNIT [Concomitant]
  9. ZOCOR TAB 20 MG [Concomitant]
  10. OMEPRAZOLE CAP 40 MG [Concomitant]
  11. TOPROL XL TAB 100 MG [Concomitant]

REACTIONS (2)
  - Tumour excision [None]
  - Therapy cessation [None]
